FAERS Safety Report 5391074-2 (Version None)
Quarter: 2007Q3

REPORT INFORMATION
  Report Type: 
  Country: None (occurrence: None)
  Receive Date: 20070719
  Receipt Date: 20070711
  Transmission Date: 20080115
  Serious: Yes (Other)
  Sender: FDA-Public Use
  Company Number: JP-ELI_LILLY_AND_COMPANY-JP200707003831

PATIENT
  Age: 52 Year
  Sex: Male

DRUGS (3)
  1. GEMZAR [Suspect]
     Indication: PANCREATIC CARCINOMA
     Dosage: 1400 MG, WEEKLY (1/W)
     Route: 042
  2. GEMZAR [Suspect]
     Dosage: 400 MG, WEEKLY (1/W)
     Route: 033
  3. PEGASYS [Concomitant]
     Dosage: 180 UG, WEEKLY (1/W)
     Route: 058

REACTIONS (3)
  - ANOREXIA [None]
  - PANCYTOPENIA [None]
  - PNEUMONIA [None]
